FAERS Safety Report 7319530 (Version 2)
Quarter: 2014Q3

REPORT INFORMATION
  Report Type: Spontaneous
  Country: None (occurrence: None)
  Receive Date: 20100224
  Receipt Date: 20140721
  Transmission Date: 20150326
  Serious: Yes (Other)
  Sender: FDA-Public Use
  Company Number: 2010S1000964

PATIENT
  Age: 71 Year
  Sex: Female
  Weight: 75 kg

DRUGS (9)
  1. FLEET NOS [Suspect]
     Active Substance: BISACODYL OR GLYCERIN OR MINERAL OIL OR SODIUM PHOSPHATE, DIBASIC\SODIUM PHOSPHATE, MONOBASIC
     Indication: PRODUCT USED FOR UNKNOWN INDICATION
     Route: 054
  2. ASPIRIN (ACETYLSALICYLIC ACID) [Concomitant]
     Active Substance: ASPIRIN
  3. CLARINEX (PSEUDOEPHEDRINE SULFATE, LORATADINE) [Concomitant]
  4. CALCIUM [Concomitant]
     Active Substance: CALCIUM
  5. TOPROL XL (METOPROLOL SUCCINATE) [Concomitant]
  6. NEXIUM [Concomitant]
     Active Substance: ESOMEPRAZOLE MAGNESIUM
  7. ALBUTEROL (SALBUTAMOL) [Concomitant]
     Active Substance: ALBUTEROL
  8. DIOVAN HCT (HYDROCHLOROTHIAZIDE, VALSARTAN) [Concomitant]
  9. PHOSPHO-SODA [Suspect]
     Active Substance: SODIUM PHOSPHATE, DIBASIC\SODIUM PHOSPHATE, MONOBASIC
     Indication: COLONOSCOPY
     Dosage: PO
     Route: 048
     Dates: start: 20080303

REACTIONS (25)
  - Renal failure acute [None]
  - Renal failure chronic [None]
  - Cervical dysplasia [None]
  - Haemorrhoids [None]
  - Pancreatitis [None]
  - Anal fissure [None]
  - Bradycardia [None]
  - Anogenital warts [None]
  - Condition aggravated [None]
  - Acute phosphate nephropathy [None]
  - Bile duct stone [None]
  - Productive cough [None]
  - Hiatus hernia [None]
  - Large intestine polyp [None]
  - Hypokalaemia [None]
  - Oral disorder [None]
  - Hydronephrosis [None]
  - Vitamin D deficiency [None]
  - Rectal haemorrhage [None]
  - Diverticulitis [None]
  - Wheezing [None]
  - Urinary tract infection [None]
  - Renal osteodystrophy [None]
  - Rectocele [None]
  - Blood pressure inadequately controlled [None]

NARRATIVE: CASE EVENT DATE: 200803
